FAERS Safety Report 23697086 (Version 1)
Quarter: 2024Q2

REPORT INFORMATION
  Report Type: Spontaneous
  Country: CN (occurrence: CN)
  Receive Date: 20240402
  Receipt Date: 20240402
  Transmission Date: 20240716
  Serious: Yes (Hospitalization)
  Sender: FDA-Public Use
  Company Number: CN-AMGEN-CHNSP2024064006

PATIENT
  Age: 70 Year
  Sex: Female

DRUGS (9)
  1. BLINATUMOMAB [Suspect]
     Active Substance: BLINATUMOMAB
     Indication: B precursor type acute leukaemia
     Dosage: 9 MICROGRAM, QD DURING THE FIRST WEEK
     Route: 065
     Dates: start: 20210910
  2. BLINATUMOMAB [Suspect]
     Active Substance: BLINATUMOMAB
     Dosage: 28 MICROGRAM, QD DURING THE NEXT 3 WEEKS
     Route: 065
  3. FILGRASTIM [Suspect]
     Active Substance: FILGRASTIM
     Indication: Febrile neutropenia
     Dosage: UNK
     Route: 065
     Dates: start: 202108
  4. VINDESINE [Concomitant]
     Active Substance: VINDESINE
     Indication: B-cell type acute leukaemia
     Dosage: UNK
     Route: 065
     Dates: start: 20210801
  5. IDARUBICIN [Concomitant]
     Active Substance: IDARUBICIN
     Indication: B-cell type acute leukaemia
     Dosage: UNK
     Route: 065
     Dates: start: 20210801
  6. DEXAMETHASONE [Concomitant]
     Active Substance: DEXAMETHASONE
     Indication: B-cell type acute leukaemia
     Dosage: UNK
     Route: 065
     Dates: start: 20210801
  7. DEXAMETHASONE [Concomitant]
     Active Substance: DEXAMETHASONE
     Dosage: 8 MILLIGRAM, BID (FOR 5 DAYS)
     Route: 042
  8. ASPARAGINASE [Concomitant]
     Active Substance: ASPARAGINASE
     Indication: B-cell type acute leukaemia
     Dosage: UNK
     Route: 065
     Dates: start: 20210801
  9. MEROPENEM [Concomitant]
     Active Substance: MEROPENEM
     Indication: Pseudomonas infection
     Dosage: UNK
     Route: 065

REACTIONS (3)
  - Pneumocystis jirovecii pneumonia [Recovered/Resolved]
  - Cholelithiasis [Recovered/Resolved]
  - Thyroid mass [Recovered/Resolved]

NARRATIVE: CASE EVENT DATE: 20210101
